FAERS Safety Report 20428959 (Version 2)
Quarter: 2022Q1

REPORT INFORMATION
  Report Type: Spontaneous
  Country: US (occurrence: US)
  Receive Date: 20220204
  Receipt Date: 20220209
  Transmission Date: 20220423
  Serious: Yes (Hospitalization)
  Sender: FDA-Public Use
  Company Number: US-STRIDES ARCOLAB LIMITED-2022SP000907

PATIENT
  Age: 84 Year
  Sex: Female

DRUGS (13)
  1. PROPRANOLOL [Suspect]
     Active Substance: PROPRANOLOL HYDROCHLORIDE
     Indication: Product used for unknown indication
     Dosage: 40 MILLIGRAM, BID
     Route: 065
  2. PROPRANOLOL [Suspect]
     Active Substance: PROPRANOLOL HYDROCHLORIDE
     Dosage: UNK, RESTARTED
     Route: 065
  3. PROPRANOLOL [Suspect]
     Active Substance: PROPRANOLOL HYDROCHLORIDE
     Dosage: 10 MILLIGRAM, EVERY 8 HOURS
     Route: 065
  4. VERAPAMIL [Interacting]
     Active Substance: VERAPAMIL HYDROCHLORIDE
     Indication: Product used for unknown indication
     Dosage: 120 MILLIGRAM PER DAY
     Route: 065
  5. VERAPAMIL [Interacting]
     Active Substance: VERAPAMIL HYDROCHLORIDE
     Dosage: UNK, RESTARTED
     Route: 065
  6. VERAPAMIL [Interacting]
     Active Substance: VERAPAMIL HYDROCHLORIDE
     Dosage: 40 MILLIGRAM, EVERY 8 HOURS
     Route: 065
  7. FLUCONAZOLE [Interacting]
     Active Substance: FLUCONAZOLE
     Indication: Intertrigo
     Dosage: 100 MILLIGRAM PER DAY
     Route: 048
  8. CEPHALEXIN [Concomitant]
     Active Substance: CEPHALEXIN
     Indication: Cellulitis
     Dosage: 500 MILLIGRAM, BID
     Route: 065
  9. CEPHALEXIN [Concomitant]
     Active Substance: CEPHALEXIN
     Indication: Intertrigo
  10. COUMADIN [Concomitant]
     Active Substance: WARFARIN SODIUM
     Indication: Product used for unknown indication
     Dosage: UNK
     Route: 065
  11. DUONEB [Concomitant]
     Active Substance: ALBUTEROL SULFATE\IPRATROPIUM BROMIDE
     Indication: Product used for unknown indication
     Dosage: UNK, PRN (INHALER AS NEEDED)
  12. CEFAZOLIN [Concomitant]
     Active Substance: CEFAZOLIN
     Indication: Cellulitis
     Dosage: UNK
     Route: 065
  13. TINACTIN [Concomitant]
     Active Substance: TOLNAFTATE
     Indication: Intertrigo
     Dosage: UNK
     Route: 065

REACTIONS (6)
  - Acute kidney injury [Recovered/Resolved]
  - Hyperkalaemia [Unknown]
  - Metabolic acidosis [Unknown]
  - Atrioventricular block first degree [Unknown]
  - Drug interaction [Unknown]
  - Bradycardia [Recovered/Resolved]
